FAERS Safety Report 13738490 (Version 1)
Quarter: 2017Q3

REPORT INFORMATION
  Report Type: Spontaneous
  Country: US (occurrence: US)
  Receive Date: 20170710
  Receipt Date: 20170710
  Transmission Date: 20171127
  Serious: Yes (Other)
  Sender: FDA-Public Use
  Company Number: US-SAOL THERAPEUTICS-2016SAO01326

PATIENT
  Age: 52 Year
  Sex: Female

DRUGS (3)
  1. BACLOFEN. [Suspect]
     Active Substance: BACLOFEN
     Dosage: 39.867 ?G, \DAY
     Route: 037
  2. BUPIVICAINE [Suspect]
     Active Substance: BUPIVACAINE
     Dosage: 6.379 MG, \DAY
  3. FENTANYL. [Suspect]
     Active Substance: FENTANYL
     Dosage: 49.967 ?G, \DAY

REACTIONS (3)
  - Off label use [Unknown]
  - Pruritus [Unknown]
  - Device failure [Unknown]

NARRATIVE: CASE EVENT DATE: 20161226
